FAERS Safety Report 9493830 (Version 3)
Quarter: 2014Q2

REPORT INFORMATION
  Report Type: Spontaneous
  Country: JP (occurrence: JP)
  Receive Date: 20130902
  Receipt Date: 20140415
  Transmission Date: 20141212
  Serious: Yes (Other)
  Sender: FDA-Public Use
  Company Number: PHHY2013JP094986

PATIENT
  Age: 65 Year
  Sex: Female
  Weight: 50 kg

DRUGS (3)
  1. ZOMETA [Suspect]
     Indication: METASTASES TO BREAST
     Dosage: 4 MG, PER ADMINISTRATION
     Dates: start: 20060727, end: 20080515
  2. ZOMETA [Suspect]
     Dosage: 4 MG, PER ADMINISTRATION
     Dates: start: 20081003
  3. BISPHOSPHONATES [Suspect]
     Route: 042

REACTIONS (5)
  - Osteonecrosis of jaw [Unknown]
  - Osteomyelitis [Unknown]
  - Exposed bone in jaw [Unknown]
  - Gingivitis [Unknown]
  - Metastases to bone [Unknown]
